FAERS Safety Report 5004985-4 (Version None)
Quarter: 2006Q1

REPORT INFORMATION
  Report Type: 
  Country: None (occurrence: None)
  Receive Date: 20060321
  Receipt Date: 20060103
  Transmission Date: 20060701
  Serious: No
  Sender: FDA-Public Use
  Company Number: YPA20050558

PATIENT
  Age: 63 Year
  Sex: Female

DRUGS (4)
  1. VESICARE [Suspect]
     Indication: HYPERTONIC BLADDER
     Dosage: 5 MG, UID/QD, ORAL
     Route: 048
     Dates: start: 20050301, end: 20050101
  2. ALTACE [Concomitant]
  3. SPRIVA (TIOTROPIUM BROMIDE) [Concomitant]
  4. HYDROCODONE BITARTRATE [Concomitant]

REACTIONS (1)
  - DRUG INEFFECTIVE [None]
